FAERS Safety Report 12188161 (Version 1)
Quarter: 2016Q1

REPORT INFORMATION
  Report Type: Spontaneous
  Country: JP (occurrence: JP)
  Receive Date: 20160317
  Receipt Date: 20160317
  Transmission Date: 20160526
  Serious: Yes (Other)
  Sender: FDA-Public Use
  Company Number: JP-PFIZER INC-2016160667

PATIENT

DRUGS (1)
  1. ATARAX-P [Suspect]
     Active Substance: HYDROXYZINE HYDROCHLORIDE
     Indication: SEDATIVE THERAPY
     Dosage: UNK

REACTIONS (1)
  - Cardiac arrest [Unknown]
